FAERS Safety Report 5938068-3 (Version None)
Quarter: 2008Q4

REPORT INFORMATION
  Report Type: 
  Country: None (occurrence: None)
  Receive Date: 20081031
  Receipt Date: 20081023
  Transmission Date: 20090506
  Serious: Yes (Hospitalization, Other)
  Sender: FDA-Public Use
  Company Number: PHHY2008JP21064

PATIENT
  Age: 66 Year
  Sex: Male

DRUGS (15)
  1. DIOVAN [Suspect]
     Dosage: UNK
     Route: 048
  2. PURSENNID [Suspect]
     Dosage: UNK
     Route: 048
  3. CONTOMIN [Concomitant]
     Dosage: UNK
  4. RISPERDAL [Concomitant]
     Dosage: UNK
     Route: 048
  5. DEPAKENE [Concomitant]
     Dosage: UNK
     Route: 048
  6. MAGNESIUM OXIDE [Concomitant]
     Route: 048
  7. DEPAS [Concomitant]
     Route: 048
  8. URSO 250 [Concomitant]
     Route: 048
  9. LASIX [Concomitant]
  10. LEVOTHYROXINE SODIUM [Concomitant]
     Route: 048
  11. GASCON [Concomitant]
     Route: 048
  12. AMLODIN [Concomitant]
     Route: 048
  13. PROMETHAZINE HCL [Concomitant]
  14. SILECE [Concomitant]
  15. LEVOTOMIN [Concomitant]

REACTIONS (2)
  - FRACTURE DELAYED UNION [None]
  - SURGERY [None]
